FAERS Safety Report 6784543-1 (Version None)
Quarter: 2010Q2

REPORT INFORMATION
  Report Type: 
  Country: None (occurrence: None)
  Receive Date: 20100622
  Receipt Date: 20100610
  Transmission Date: 20101027
  Serious: Yes (Hospitalization)
  Sender: FDA-Public Use
  Company Number: FR-BRISTOL-MYERS SQUIBB COMPANY-15156763

PATIENT
  Age: 57 Year
  Sex: Male

DRUGS (7)
  1. ERBITUX [Suspect]
     Indication: LARGE CELL CARCINOMA OF THE RESPIRATORY TRACT STAGE UNSPECIFIED
     Dosage: 4DF=4INJECTIONS
     Route: 042
     Dates: start: 20091123, end: 20091214
  2. CISPLATIN [Concomitant]
     Indication: LARGE CELL CARCINOMA OF THE RESPIRATORY TRACT STAGE UNSPECIFIED
     Route: 042
     Dates: start: 20091123
  3. TAXOTERE [Concomitant]
     Indication: LARGE CELL CARCINOMA OF THE RESPIRATORY TRACT STAGE UNSPECIFIED
     Dosage: SOLN FOR INJ
     Route: 042
     Dates: start: 20091123
  4. LOVENOX [Concomitant]
     Indication: PROPHYLAXIS
     Dosage: SOLN FOR INJ
     Route: 058
     Dates: start: 20091030, end: 20091130
  5. DOXYCYCLINE [Concomitant]
     Dates: start: 20091130
  6. NEXIUM [Concomitant]
     Dates: start: 20091130
  7. ARIXTRA [Concomitant]
     Indication: PROPHYLAXIS
     Dates: start: 20091130

REACTIONS (2)
  - LEUKOCYTOCLASTIC VASCULITIS [None]
  - RASH PUSTULAR [None]
